FAERS Safety Report 11121036 (Version 4)
Quarter: 2015Q4

REPORT INFORMATION
  Report Type: Other
  Country: GB (occurrence: GB)
  Receive Date: 20150519
  Receipt Date: 20151201
  Transmission Date: 20160304
  Serious: Yes (Other)
  Sender: FDA-Public Use
  Company Number: GB-STRIDES ARCOLAB LIMITED-2014SP005804

PATIENT
  Age: 34 Year

DRUGS (12)
  1. MYCOPHENOLATE MOFETIL. [Suspect]
     Active Substance: MYCOPHENOLATE MOFETIL
     Indication: ANEURYSM
     Dosage: UNK
  2. CICLOSPORIN [Suspect]
     Active Substance: CYCLOSPORINE
     Indication: ANEURYSM
     Dosage: UNK
  3. RITUXIMAB [Suspect]
     Active Substance: RITUXIMAB
     Indication: SCLERITIS
     Dosage: UNK
     Route: 065
  4. MYCOPHENOLATE MOFETIL. [Suspect]
     Active Substance: MYCOPHENOLATE MOFETIL
     Indication: SCLERITIS
     Dosage: UNK
     Route: 065
  5. AZATHIOPRINE. [Suspect]
     Active Substance: AZATHIOPRINE
     Indication: ANEURYSM
  6. CICLOSPORIN [Suspect]
     Active Substance: CYCLOSPORINE
     Indication: SCLERITIS
     Dosage: UNK
     Route: 065
  7. AZATHIOPRINE. [Suspect]
     Active Substance: AZATHIOPRINE
     Indication: SCLERITIS
     Dosage: UNK
     Route: 065
  8. CYCLOPHOSPHAMIDE. [Suspect]
     Active Substance: CYCLOPHOSPHAMIDE
     Indication: ANEURYSM
     Dosage: UNK
     Route: 042
  9. CORTICOSTEROIDS [Suspect]
     Active Substance: CORTICOSTEROID NOS
     Indication: ANEURYSM
     Dosage: UNK
     Route: 048
  10. CYCLOPHOSPHAMIDE. [Suspect]
     Active Substance: CYCLOPHOSPHAMIDE
     Indication: SCLERITIS
  11. INFLIXIMAB [Suspect]
     Active Substance: INFLIXIMAB
     Indication: SCLERITIS
     Dosage: UNK
  12. CORTICOSTEROIDS [Suspect]
     Active Substance: CORTICOSTEROID NOS
     Indication: SCLERITIS

REACTIONS (9)
  - Aneurysm [None]
  - Peripheral artery aneurysm [Unknown]
  - Peripheral ischaemia [Not Recovered/Not Resolved]
  - Femoral artery aneurysm [None]
  - Disease progression [Unknown]
  - Vascular stent thrombosis [None]
  - Post procedural complication [None]
  - Scleritis [Recovered/Resolved]
  - Off label use [Unknown]
